FAERS Safety Report 21793620 (Version 1)
Quarter: 2022Q4

REPORT INFORMATION
  Report Type: Spontaneous
  Country: FR (occurrence: FR)
  Receive Date: 20221229
  Receipt Date: 20221229
  Transmission Date: 20230113
  Serious: Yes (Hospitalization)
  Sender: FDA-Public Use
  Company Number: None

PATIENT
  Age: 56 Year
  Sex: Male
  Weight: 64 kg

DRUGS (3)
  1. CARBOPLATIN [Suspect]
     Active Substance: CARBOPLATIN
     Indication: Bronchial carcinoma
     Dates: start: 20220521, end: 20220802
  2. PACLITAXEL [Suspect]
     Active Substance: PACLITAXEL
     Indication: Bronchial carcinoma
     Dates: start: 20220521, end: 20220802
  3. PEMBROLIZUMAB [Suspect]
     Active Substance: PEMBROLIZUMAB
     Indication: Bronchial carcinoma
     Dosage: STRENGTH 50 MG
     Dates: start: 20220521, end: 20221025

REACTIONS (2)
  - Right ventricular ejection fraction decreased [Not Recovered/Not Resolved]
  - Condition aggravated [Not Recovered/Not Resolved]

NARRATIVE: CASE EVENT DATE: 20221114
